FAERS Safety Report 24806743 (Version 1)
Quarter: 2025Q1

REPORT INFORMATION
  Report Type: Spontaneous
  Country: GB (occurrence: GB)
  Receive Date: 20250104
  Receipt Date: 20250104
  Transmission Date: 20250408
  Serious: Yes (Other)
  Sender: AUROBINDO
  Company Number: GB-MHRA-MED-202412221432198710-YDQLG

PATIENT
  Sex: Female
  Weight: 62 kg

DRUGS (1)
  1. RAMIPRIL [Suspect]
     Active Substance: RAMIPRIL
     Indication: Atrial tachycardia
     Route: 065

REACTIONS (1)
  - Gingival erythema [Recovering/Resolving]

NARRATIVE: CASE EVENT DATE: 20240101
